FAERS Safety Report 7465714-8 (Version None)
Quarter: 2011Q2

REPORT INFORMATION
  Report Type: 
  Country: None (occurrence: None)
  Receive Date: 20110509
  Receipt Date: 20110502
  Transmission Date: 20111010
  Serious: Yes (Hospitalization)
  Sender: FDA-Public Use
  Company Number: B0717164A

PATIENT
  Age: 19 Year
  Sex: Male

DRUGS (1)
  1. ZOVIRAX [Suspect]
     Indication: PROPHYLAXIS
     Dosage: 2400MG PER DAY
     Route: 065

REACTIONS (6)
  - EPILEPSY [None]
  - MUSCLE TWITCHING [None]
  - ENCEPHALITIS [None]
  - CIRCULATORY COLLAPSE [None]
  - HERPES ZOSTER [None]
  - TREMOR [None]
